FAERS Safety Report 11178892 (Version 1)
Quarter: 2015Q2

REPORT INFORMATION
  Report Type: Spontaneous
  Country: US (occurrence: None)
  Receive Date: 20150521
  Receipt Date: 20150521
  Transmission Date: 20150821
  Serious: Yes (Other)
  Sender: FDA-Public Use
  Company Number: GTI003206

PATIENT
  Age: 80 Year
  Sex: Male
  Weight: 62 kg

DRUGS (11)
  1. UNFRACTIONATED HEPARIN [Concomitant]
     Active Substance: HEPARIN SODIUM
  2. ASPIRIN. [Concomitant]
     Active Substance: ASPIRIN
  3. DOCUSATE [Concomitant]
     Active Substance: DOCUSATE
  4. POTASSIUM CHLORIDE. [Concomitant]
     Active Substance: POTASSIUM CHLORIDE
  5. METOLAZONE. [Concomitant]
     Active Substance: METOLAZONE
  6. SIMVASTATIN. [Concomitant]
     Active Substance: SIMVASTATIN
  7. SPIRONOLACTONE. [Concomitant]
     Active Substance: SPIRONOLACTONE
  8. VITAMIN B12/00056201/ [Concomitant]
  9. SILDENAFIL. [Concomitant]
     Active Substance: SILDENAFIL
  10. FUROSEMIDE. [Concomitant]
     Active Substance: FUROSEMIDE
  11. THROMBATE III [Suspect]
     Active Substance: ANTITHROMBIN III HUMAN
     Indication: COAGULATION TIME SHORTENED
     Route: 042
     Dates: start: 20150306, end: 20150306

REACTIONS (2)
  - Drug interaction [None]
  - Haemorrhage [None]

NARRATIVE: CASE EVENT DATE: 20150306
